FAERS Safety Report 5912905-0 (Version None)
Quarter: 2008Q4

REPORT INFORMATION
  Report Type: 
  Country: None (occurrence: None)
  Receive Date: 20081006
  Receipt Date: 20080922
  Transmission Date: 20090506
  Serious: Yes (Death)
  Sender: FDA-Public Use
  Company Number: 2008-03146

PATIENT
  Age: 60 Year
  Sex: Female
  Weight: 43 kg

DRUGS (13)
  1. VELCADE [Suspect]
     Indication: MULTIPLE MYELOMA
     Dosage: 1.7 MG,  INTRAVENOUS; 1.3 MG, INTRAVENOUS
     Route: 042
     Dates: start: 20080527, end: 20080624
  2. VELCADE [Suspect]
     Indication: MULTIPLE MYELOMA
     Dosage: 1.7 MG,  INTRAVENOUS; 1.3 MG, INTRAVENOUS
     Route: 042
     Dates: start: 20080723, end: 20080801
  3. MUCOSTA (REBAMIPIDE) [Concomitant]
  4. FAMOTIDINE (FAMOTIDINE) TABLET [Concomitant]
  5. LENDORMIN (BROTIZOLAM) TABLET [Concomitant]
  6. DEXAMETHASONE SODIUM PHOSPHATE [Concomitant]
  7. ADONA (CARBAZOCHROME SODIUM SULFONATE) [Concomitant]
  8. TRANSAMIN (TRANEXAMIC ACID) [Concomitant]
  9. SODIUM BICARBONATE [Concomitant]
  10. MAGNESIUM OXIDE (MAGNESIUM OXIDE) [Concomitant]
  11. LEVOFLOXACIN [Concomitant]
  12. PLATELETS [Concomitant]
  13. RED BLOOD CELLS, LEUCOCYTE DEPLETED (RED BLOOD CELLS, LEUCOCYTE DEPLET [Concomitant]

REACTIONS (11)
  - CEREBRAL HAEMORRHAGE [None]
  - COMA [None]
  - CONDITION AGGRAVATED [None]
  - DISORIENTATION [None]
  - FALL [None]
  - GENITAL HERPES [None]
  - HYPERPROTEINAEMIA [None]
  - ILL-DEFINED DISORDER [None]
  - PLATELET COUNT DECREASED [None]
  - URINARY RETENTION [None]
  - VULVAL ABSCESS [None]
